FAERS Safety Report 6173946-4 (Version None)
Quarter: 2009Q2

REPORT INFORMATION
  Report Type: 
  Country: None (occurrence: None)
  Receive Date: 20090430
  Receipt Date: 20090410
  Transmission Date: 20091009
  Serious: Yes (Other)
  Sender: FDA-Public Use
  Company Number: CZ-PFIZER INC-2009203223

PATIENT

DRUGS (2)
  1. TOVIAZ [Suspect]
     Route: 048
  2. TOVIAZ [Suspect]
     Route: 048

REACTIONS (2)
  - COGNITIVE DISORDER [None]
  - SOMNOLENCE [None]
